FAERS Safety Report 4882312-0 (Version None)
Quarter: 2006Q1

REPORT INFORMATION
  Report Type: 
  Country: None (occurrence: None)
  Receive Date: 20060117
  Receipt Date: 20051006
  Transmission Date: 20060701
  Serious: Yes (Hospitalization)
  Sender: FDA-Public Use
  Company Number: US-GLAXOSMITHKLINE-A0577318A

PATIENT
  Age: 54 Year
  Sex: Female
  Weight: 81 kg

DRUGS (9)
  1. ECOTRIN REGULAR STRENGTH TABLETS [Suspect]
     Dosage: 325MG PER DAY
     Route: 048
  2. PLAVIX [Concomitant]
     Route: 048
  3. LISINOPRIL [Concomitant]
     Route: 048
  4. LEXAPRO [Concomitant]
     Indication: DEPRESSION
     Route: 048
  5. IMDUR [Concomitant]
     Route: 048
  6. ATENOLOL [Concomitant]
     Indication: HYPERTENSION
  7. DITROPAN XL [Concomitant]
     Route: 048
  8. LIPITOR [Concomitant]
     Route: 048
  9. NITROQUICK [Concomitant]
     Indication: CHEST PAIN
     Route: 060

REACTIONS (4)
  - INTESTINAL OBSTRUCTION [None]
  - MEDICATION RESIDUE [None]
  - MYOCARDIAL INFARCTION [None]
  - PHARMACEUTICAL PRODUCT COMPLAINT [None]
